FAERS Safety Report 12930445 (Version 1)
Quarter: 2016Q4

REPORT INFORMATION
  Report Type: Spontaneous
  Country: US (occurrence: US)
  Receive Date: 20161111
  Receipt Date: 20161111
  Transmission Date: 20170207
  Serious: No
  Sender: FDA-Public Use
  Company Number: None

PATIENT

DRUGS (2)
  1. MORPHINE SULFATE ORAL SOLUTION (CONCENTRATE) 10MG/5ML [Suspect]
     Active Substance: MORPHINE SULFATE
     Route: 048
  2. MORPHINE SULFATE ORAL SOLUTION (CONCENTRATE) 100MG/5ML [Suspect]
     Active Substance: MORPHINE SULFATE
     Dosage: SOLUTION
     Route: 048

REACTIONS (2)
  - Drug dispensing error [None]
  - Intercepted drug administration error [None]
